FAERS Safety Report 10016360 (Version 1)
Quarter: 2014Q1

REPORT INFORMATION
  Report Type: Spontaneous
  Country: US (occurrence: US)
  Receive Date: 20140317
  Receipt Date: 20140317
  Transmission Date: 20141002
  Serious: No
  Sender: FDA-Public Use
  Company Number: US-PFIZER INC-2014073938

PATIENT
  Age: 56 Year
  Sex: Female

DRUGS (1)
  1. PRISTIQ [Suspect]
     Indication: EPILEPSY
     Dosage: 50 MG, EVERY DAY
     Route: 048

REACTIONS (2)
  - Drug hypersensitivity [Unknown]
  - Off label use [Unknown]
